FAERS Safety Report 9686129 (Version 1)
Quarter: 2013Q4

REPORT INFORMATION
  Report Type: Report from Study
  Country: IL (occurrence: IL)
  Receive Date: 20131113
  Receipt Date: 20131113
  Transmission Date: 20140711
  Serious: Yes (Hospitalization)
  Sender: FDA-Public Use
  Company Number: PHHY2013IL125553

PATIENT
  Age: 69 Year
  Sex: Male

DRUGS (1)
  1. GILENYA [Suspect]
     Indication: MULTIPLE SCLEROSIS
     Dosage: 0.5 MG, UNK
     Route: 048
     Dates: start: 20130612, end: 20131107

REACTIONS (4)
  - Nephrolithiasis [Recovering/Resolving]
  - Sepsis [Unknown]
  - Pyrexia [Not Recovered/Not Resolved]
  - Urinary tract infection [Unknown]
